FAERS Safety Report 12557677 (Version 1)
Quarter: 2016Q3

REPORT INFORMATION
  Report Type: Spontaneous
  Country: US (occurrence: US)
  Receive Date: 20160714
  Receipt Date: 20160714
  Transmission Date: 20161109
  Serious: Yes (Hospitalization)
  Sender: FDA-Public Use
  Company Number: US-JNJFOC-20160707979

PATIENT
  Age: 43 Year
  Sex: Male

DRUGS (1)
  1. INVEGA SUSTENNA [Suspect]
     Active Substance: PALIPERIDONE PALMITATE
     Indication: PRODUCT USED FOR UNKNOWN INDICATION
     Route: 030
     Dates: start: 2010, end: 2016

REACTIONS (4)
  - Agitation [Unknown]
  - Hospitalisation [Unknown]
  - Drug ineffective [Unknown]
  - Anorgasmia [Unknown]

NARRATIVE: CASE EVENT DATE: 20160615
